FAERS Safety Report 9795261 (Version 3)
Quarter: 2014Q4

REPORT INFORMATION
  Report Type: Spontaneous
  Country: TR (occurrence: TR)
  Receive Date: 20140103
  Receipt Date: 20141113
  Transmission Date: 20150529
  Serious: Yes (Hospitalization)
  Sender: FDA-Public Use
  Company Number: TR-AMGEN-TURSP2013009168

PATIENT
  Age: 47 Year
  Sex: Male
  Weight: 86 kg

DRUGS (3)
  1. ENBREL [Suspect]
     Active Substance: ETANERCEPT
     Indication: ANKYLOSING SPONDYLITIS
     Dosage: 50 MG, WEEKLY
     Route: 058
     Dates: start: 20120710
  2. METHOTREXATE [Concomitant]
     Active Substance: METHOTREXATE
     Indication: ANKYLOSING SPONDYLITIS
     Dosage: 6 TABLETS (ONE TABLET WAS 15 MG) ONCE WEEKLY, (INCREASED FROM 10MG TO 15MG)
     Dates: start: 2011
  3. DELTACORTRIL                       /00016201/ [Concomitant]
     Indication: ANKYLOSING SPONDYLITIS
     Dosage: 7.5 MG, ONCE DAILY, (INCREASED FROM 5 MG TO 7.5MG)
     Dates: start: 2009

REACTIONS (16)
  - Pyrexia [Not Recovered/Not Resolved]
  - Red blood cell sedimentation rate increased [Not Recovered/Not Resolved]
  - Nasopharyngitis [Recovered/Resolved]
  - Headache [Not Recovered/Not Resolved]
  - Aphonia [Recovered/Resolved]
  - Dyspnoea [Recovered/Resolved]
  - Musculoskeletal pain [Not Recovered/Not Resolved]
  - Dyspepsia [Recovered/Resolved]
  - Hyperhidrosis [Not Recovered/Not Resolved]
  - Embolism [Recovered/Resolved]
  - Injection site haemorrhage [Not Recovered/Not Resolved]
  - Blood test abnormal [Unknown]
  - Injection site swelling [Recovered/Resolved]
  - Drug ineffective [Recovered/Resolved]
  - Neck pain [Not Recovered/Not Resolved]
  - Hiccups [Recovered/Resolved]

NARRATIVE: CASE EVENT DATE: 20120710
